FAERS Safety Report 8942655 (Version 1)
Quarter: 2012Q4

REPORT INFORMATION
  Report Type: 
  Country: US (occurrence: US)
  Receive Date: 20121204
  Receipt Date: 20121204
  Transmission Date: 20130627
  Serious: No
  Sender: FDA-Public Use
  Company Number: US-PFIZER INC-2012302050

PATIENT
  Age: 80 Year
  Sex: Female
  Weight: 92.97 kg

DRUGS (1)
  1. ADVIL [Suspect]
     Indication: KNEE ARTHRITIS
     Dosage: UNK

REACTIONS (4)
  - Drug effect decreased [Unknown]
  - Abdominal pain upper [Unknown]
  - Body height decreased [Unknown]
  - Tooth disorder [Unknown]
